FAERS Safety Report 19871511 (Version 1)
Quarter: 2021Q3

REPORT INFORMATION
  Report Type: Spontaneous
  Country: FR (occurrence: FR)
  Receive Date: 20210923
  Receipt Date: 20210923
  Transmission Date: 20211014
  Serious: Yes (Hospitalization)
  Sender: FDA-Public Use
  Company Number: FR-AUROBINDO-AUR-APL-2021-039838

PATIENT
  Age: 70 Year
  Sex: Male

DRUGS (1)
  1. DICLOFENAC [Suspect]
     Active Substance: DICLOFENAC
     Indication: TENDONITIS
     Dosage: 1 DOSAGE FORM, ONCE A DAY(1 APPLICATION PER DAY)
     Route: 003
     Dates: start: 20210301, end: 20210305

REACTIONS (3)
  - Urticaria [Recovered/Resolved]
  - Pharyngeal oedema [Recovered/Resolved]
  - Lip oedema [Recovered/Resolved]

NARRATIVE: CASE EVENT DATE: 20210305
